FAERS Safety Report 7207089-5 (Version None)
Quarter: 2011Q1

REPORT INFORMATION
  Report Type: 
  Country: None (occurrence: None)
  Receive Date: 20110103
  Receipt Date: 20101222
  Transmission Date: 20110831
  Serious: Yes (Other)
  Sender: FDA-Public Use
  Company Number: B0691835A

PATIENT
  Age: 61 Year
  Sex: Female

DRUGS (1)
  1. AMOXICILLIN [Suspect]
     Route: 065

REACTIONS (8)
  - LYMPHADENOPATHY [None]
  - CYTOLYTIC HEPATITIS [None]
  - RASH MACULO-PAPULAR [None]
  - DERMATITIS EXFOLIATIVE [None]
  - EPSTEIN-BARR VIRUS INFECTION [None]
  - SPLENOMEGALY [None]
  - PYREXIA [None]
  - EOSINOPHILIA [None]
